FAERS Safety Report 11473143 (Version 1)
Quarter: 2015Q3

REPORT INFORMATION
  Report Type: Spontaneous
  Country: US (occurrence: US)
  Receive Date: 20150908
  Receipt Date: 20150908
  Transmission Date: 20151125
  Serious: Yes (Other)
  Sender: FDA-Public Use
  Company Number: US-JAZZ-2014-US-013878

PATIENT
  Age: 12 Year
  Sex: Male
  Weight: 56.69 kg

DRUGS (4)
  1. DEXTROAMPHETAMINE. [Concomitant]
     Active Substance: DEXTROAMPHETAMINE SULFATE
     Indication: NARCOLEPSY
     Route: 048
  2. XYREM [Suspect]
     Active Substance: SODIUM OXYBATE
     Indication: NARCOLEPSY
     Dosage: DOSE ADJUSTMENTS
     Route: 048
  3. XYREM [Suspect]
     Active Substance: SODIUM OXYBATE
     Dosage: 3 G, BID
     Route: 048
  4. XYREM [Suspect]
     Active Substance: SODIUM OXYBATE
     Indication: CATAPLEXY
     Dosage: 1 G, BID
     Route: 048
     Dates: start: 201104, end: 2011

REACTIONS (12)
  - Body temperature decreased [Recovered/Resolved]
  - Fall [Recovered/Resolved]
  - Heart rate increased [Recovered/Resolved]
  - Accidental overdose [Recovered/Resolved]
  - Feeling hot [Not Recovered/Not Resolved]
  - Hypotension [Unknown]
  - Product use issue [Unknown]
  - Somnolence [Recovered/Resolved]
  - Vomiting [Recovered/Resolved]
  - Loss of consciousness [Recovered/Resolved]
  - Blood pressure increased [Recovered/Resolved]
  - Hyperhidrosis [Recovered/Resolved]

NARRATIVE: CASE EVENT DATE: 20141021
